FAERS Safety Report 6354457-X (Version None)
Quarter: 2009Q3

REPORT INFORMATION
  Report Type: 
  Country: None (occurrence: None)
  Receive Date: 20090914
  Receipt Date: 20090902
  Transmission Date: 20100115
  Serious: Yes (Other)
  Sender: FDA-Public Use
  Company Number: GB-AMGEN-US356087

PATIENT
  Sex: Female
  Weight: 71.2 kg

DRUGS (7)
  1. ENBREL [Suspect]
     Indication: RHEUMATOID ARTHRITIS
     Route: 058
     Dates: start: 20090428, end: 20090901
  2. ARTHROTEC [Concomitant]
     Indication: PAIN
     Dosage: DOSAGE UNSPECIFIED, PRN
     Route: 048
  3. ARTHROTEC [Concomitant]
     Indication: INFLAMMATION
  4. CO-CODAMOL [Concomitant]
     Indication: PAIN
     Route: 048
  5. CALCICHEW [Concomitant]
     Indication: OSTEOPOROSIS
     Route: 048
  6. METHOTREXATE [Concomitant]
     Indication: RHEUMATOID ARTHRITIS
     Route: 048
  7. ALENDRONATE SODIUM [Concomitant]
     Indication: OSTEOPOROSIS
     Dosage: UNKNOWN
     Route: 048

REACTIONS (2)
  - COLON CANCER [None]
  - COLONIC POLYP [None]
